FAERS Safety Report 8025411-7 (Version None)
Quarter: 2012Q1

REPORT INFORMATION
  Report Type: 
  Country: None (occurrence: None)
  Receive Date: 20120105
  Receipt Date: 20111230
  Transmission Date: 20120608
  Serious: Yes (Other)
  Sender: FDA-Public Use
  Company Number: BR-PFIZER INC-2010082847

PATIENT
  Age: 45 Year
  Sex: Female
  Weight: 53 kg

DRUGS (3)
  1. ALPRAZOLAM [Suspect]
  2. ALPRAZOLAM [Suspect]
     Indication: PANIC DISORDER
     Dosage: 2 MG, 3X/DAY
     Route: 048
  3. ALPRAZOLAM [Suspect]
     Dosage: UNK
     Dates: start: 20040101

REACTIONS (12)
  - LIBIDO DISORDER [None]
  - DRUG INEFFECTIVE [None]
  - DRUG EFFECT DECREASED [None]
  - NERVOUSNESS [None]
  - ABDOMINAL DISCOMFORT [None]
  - AMPUTATION [None]
  - TREMOR [None]
  - THROAT IRRITATION [None]
  - HYPERSENSITIVITY [None]
  - HEADACHE [None]
  - PRESYNCOPE [None]
  - WEIGHT INCREASED [None]
